FAERS Safety Report 5914036-2 (Version None)
Quarter: 2008Q4

REPORT INFORMATION
  Report Type: 
  Country: None (occurrence: None)
  Receive Date: 20081009
  Receipt Date: 20081007
  Transmission Date: 20090506
  Serious: Yes (Hospitalization)
  Sender: FDA-Public Use
  Company Number: JP-ELI_LILLY_AND_COMPANY-JP200808001150

PATIENT
  Age: 53 Year
  Sex: Female

DRUGS (20)
  1. HUMALOG [Suspect]
     Indication: DIABETES MELLITUS
     Dosage: 6 UL, EACH MORNING
     Route: 058
     Dates: start: 20080609, end: 20080612
  2. HUMALOG [Suspect]
     Dosage: 2 IU, EACH EVENING
     Route: 058
     Dates: start: 20080609, end: 20080612
  3. HUMALOG [Suspect]
     Indication: DIABETES MELLITUS
     Dosage: 6 IU, EACH MORNING
     Route: 058
     Dates: start: 20080612
  4. HUMALOG [Suspect]
     Dosage: 2 IU, EACH EVENING
     Route: 058
     Dates: start: 20080612
  5. HUMALOG [Suspect]
     Dosage: 3 IU, EACH MORNING
     Route: 058
     Dates: end: 20080628
  6. HUMALOG [Suspect]
     Dosage: 1 IU, EACH EVENING
     Route: 058
     Dates: end: 20080628
  7. HUMULIN R [Suspect]
     Indication: DIABETES MELLITUS
     Dosage: 6 IU, EACH MORNING
     Route: 042
     Dates: start: 20080731, end: 20080810
  8. HUMULIN R [Suspect]
     Dosage: 3 IU, DAILY (1/D)
     Route: 042
     Dates: start: 20080731, end: 20080810
  9. HUMULIN R [Suspect]
     Dosage: 3 IU, EACH EVENING
     Route: 042
     Dates: start: 20080731, end: 20080810
  10. HUMULIN R [Suspect]
     Dosage: 0.5 IU, EVERY HOUR
     Route: 042
     Dates: start: 20080731, end: 20080810
  11. HUMALOG [Suspect]
     Dosage: 7 IU, EACH MORNING
     Route: 058
     Dates: start: 20080811
  12. HUMALOG [Suspect]
     Dosage: 2 IU, DAILY (1/D)
     Route: 058
     Dates: start: 20080811
  13. HUMALOG [Suspect]
     Dosage: 3 IU, EACH EVENING
     Route: 058
     Dates: start: 20080811
  14. NOVORAPID /DEN/ [Concomitant]
     Indication: DIABETES MELLITUS
     Dosage: 8 IU, EACH MORNING
     Route: 058
     Dates: end: 20080609
  15. NOVORAPID /DEN/ [Concomitant]
     Dosage: 6 IU, EACH EVENING
     Route: 058
     Dates: end: 20080609
  16. NOVORAPID /DEN/ [Concomitant]
     Dosage: 8 IU, EACH MORNING
     Route: 058
     Dates: start: 20080628, end: 20080730
  17. NOVORAPID /DEN/ [Concomitant]
     Dosage: 6 IU, EACH EVENING
     Route: 058
     Dates: start: 20080628, end: 20080730
  18. LEVEMIR [Concomitant]
     Indication: DIABETES MELLITUS
     Dosage: 2 IU, UNK
     Route: 058
     Dates: start: 20080612, end: 20080628
  19. NOVOLIN N [Concomitant]
     Indication: DIABETES MELLITUS
     Dosage: 2 IU, DAILY (1/D)
     Route: 058
     Dates: start: 20080730, end: 20080730
  20. NOVOLIN R [Concomitant]
     Indication: DIABETES MELLITUS
     Dosage: 3 IU, DAILY (1/D)
     Route: 058
     Dates: start: 20080730, end: 20080730

REACTIONS (3)
  - ANTI-INSULIN ANTIBODY INCREASED [None]
  - HEPATIC ENZYME INCREASED [None]
  - HYPOGLYCAEMIA [None]
